FAERS Safety Report 16939018 (Version 1)
Quarter: 2019Q4

REPORT INFORMATION
  Report Type: Spontaneous
  Country: VE (occurrence: VE)
  Receive Date: 20191020
  Receipt Date: 20191020
  Transmission Date: 20200122
  Serious: Yes (Death)
  Sender: FDA-Public Use
  Company Number: NVSC2019VE009882

PATIENT
  Sex: Male

DRUGS (1)
  1. GLIVEC [Suspect]
     Active Substance: IMATINIB MESYLATE
     Indication: GASTROINTESTINAL STROMAL TUMOUR
     Dosage: 400 MG (4 OF 100 MG)
     Route: 065

REACTIONS (4)
  - Death [Fatal]
  - Blood creatinine increased [Unknown]
  - Blood urea increased [Unknown]
  - Peripheral swelling [Unknown]
